FAERS Safety Report 23013446 (Version 3)
Quarter: 2023Q4

REPORT INFORMATION
  Report Type: Spontaneous
  Country: JP (occurrence: JP)
  Receive Date: 20231001
  Receipt Date: 20231103
  Transmission Date: 20240110
  Serious: Yes (Hospitalization)
  Sender: FDA-Public Use
  Company Number: JP-JNJFOC-20230960278

PATIENT
  Age: 8 Decade
  Sex: Male

DRUGS (6)
  1. OPSUMIT [Suspect]
     Active Substance: MACITENTAN
     Indication: Pulmonary arterial hypertension
     Route: 048
  2. UPTRAVI [Suspect]
     Active Substance: SELEXIPAG
     Indication: Pulmonary arterial hypertension
     Route: 048
  3. UPTRAVI [Suspect]
     Active Substance: SELEXIPAG
     Route: 048
  4. ADCIRCA [Suspect]
     Active Substance: TADALAFIL
     Indication: Pulmonary arterial hypertension
     Dosage: (40-10 MG) 1 TIME EVERY 1 DAY
     Route: 048
  5. ADCIRCA [Suspect]
     Active Substance: TADALAFIL
     Route: 048
  6. ADCIRCA [Suspect]
     Active Substance: TADALAFIL
     Route: 048

REACTIONS (3)
  - Pulmonary hypertension [Unknown]
  - Dyspnoea exertional [Unknown]
  - Interstitial lung disease [Unknown]
